FAERS Safety Report 22338307 (Version 2)
Quarter: 2023Q2

REPORT INFORMATION
  Report Type: Spontaneous
  Country: VN (occurrence: VN)
  Receive Date: 20230518
  Receipt Date: 20230601
  Transmission Date: 20230722
  Serious: Yes (Hospitalization, Other)
  Sender: FDA-Public Use
  Company Number: VN-TEVA-2023-VN-2887976

PATIENT
  Age: 15 Year
  Sex: Male

DRUGS (1)
  1. MYCOPHENOLATE MOFETIL [Suspect]
     Active Substance: MYCOPHENOLATE MOFETIL
     Indication: Immunosuppressant drug therapy
     Route: 065

REACTIONS (4)
  - BK virus infection [Unknown]
  - Cytomegalovirus infection [Unknown]
  - Parvovirus B19 infection [Recovered/Resolved]
  - Anaemia [Recovered/Resolved]
